FAERS Safety Report 8091850-1 (Version None)
Quarter: 2012Q1

REPORT INFORMATION
  Report Type: 
  Country: None (occurrence: None)
  Receive Date: 20120129
  Receipt Date: 20111121
  Transmission Date: 20120608
  Serious: No
  Sender: FDA-Public Use
  Company Number: US-ABBOTT-11P-163-0876650-00

PATIENT
  Sex: Male
  Weight: 77.18 kg

DRUGS (4)
  1. PROTONIX [Concomitant]
     Indication: GASTRIC DISORDER
  2. METOPROLOL TARTRATE [Concomitant]
     Indication: HYPERTENSION
  3. LOSARTAN POTASSIUM [Concomitant]
     Indication: HYPERTENSION
  4. HUMIRA [Suspect]
     Indication: PSORIATIC ARTHROPATHY
     Dates: start: 20110301

REACTIONS (2)
  - INCORRECT ROUTE OF DRUG ADMINISTRATION [None]
  - WRONG TECHNIQUE IN DRUG USAGE PROCESS [None]
